FAERS Safety Report 6261648-5 (Version None)
Quarter: 2009Q3

REPORT INFORMATION
  Report Type: 
  Country: None (occurrence: None)
  Receive Date: 20090707
  Receipt Date: 20090707
  Transmission Date: 20100115
  Serious: Yes (Hospitalization)
  Sender: FDA-Public Use
  Company Number: None

PATIENT
  Age: 59 Year
  Sex: Male
  Weight: 74.39 kg

DRUGS (2)
  1. WARFARIN SODIUM [Suspect]
     Indication: ANTICOAGULANT THERAPY
     Dosage: 7.5 MG EVERY DAY PO
     Route: 048
     Dates: start: 20090324, end: 20090515
  2. ENOXAPARIN SODIUM [Suspect]
     Dosage: 40 MG BID SQ
     Dates: start: 20090324, end: 20090423

REACTIONS (4)
  - BRAIN STEM HAEMORRHAGE [None]
  - GASTRIC HAEMORRHAGE [None]
  - HEADACHE [None]
  - SPEECH DISORDER [None]
